FAERS Safety Report 4616222-0 (Version None)
Quarter: 2005Q1

REPORT INFORMATION
  Report Type: 
  Country: None (occurrence: None)
  Receive Date: 20050321
  Receipt Date: 20050307
  Transmission Date: 20050727
  Serious: Yes (Hospitalization)
  Sender: FDA-Public Use
  Company Number: 2005-125929-NL

PATIENT
  Age: 37 Year
  Sex: Female

DRUGS (5)
  1. CHORIONIC GONADOTROPIN [Suspect]
     Indication: IN VITRO FERTILISATION
     Dosage: DF
     Dates: start: 20040911, end: 20040911
  2. UROFOLLITROPIN [Suspect]
     Indication: IN VITRO FERTILISATION
     Dosage: 225 IU QD; SUBCUTANEOUS
     Route: 058
     Dates: start: 20040826, end: 20040910
  3. BUSERELIN [Concomitant]
  4. PROGESTERONE [Concomitant]
  5. PROGESTERONE [Concomitant]

REACTIONS (3)
  - ABORTION INDUCED [None]
  - DRUG EXPOSURE DURING PREGNANCY [None]
  - ECTOPIC PREGNANCY [None]
